FAERS Safety Report 5727408-6 (Version None)
Quarter: 2008Q2

REPORT INFORMATION
  Report Type: 
  Country: None (occurrence: None)
  Receive Date: 20080505
  Receipt Date: 20080417
  Transmission Date: 20081010
  Serious: Yes (Hospitalization, Other)
  Sender: FDA-Public Use
  Company Number: CA-BAYER-200711969GDS

PATIENT
  Age: 17 Year
  Sex: Female

DRUGS (1)
  1. ASPIRIN [Suspect]
     Indication: COMPLETED SUICIDE
     Route: 065
     Dates: start: 20050110

REACTIONS (6)
  - DIZZINESS [None]
  - HYPOKALAEMIA [None]
  - INTENTIONAL OVERDOSE [None]
  - RESPIRATORY RATE INCREASED [None]
  - THERAPEUTIC AGENT TOXICITY [None]
  - VOMITING [None]
